FAERS Safety Report 6072786-4 (Version None)
Quarter: 2009Q1

REPORT INFORMATION
  Report Type: 
  Country: None (occurrence: None)
  Receive Date: 20090205
  Receipt Date: 20090120
  Transmission Date: 20090719
  Serious: Yes (Hospitalization)
  Sender: FDA-Public Use
  Company Number: 2009S1001121

PATIENT
  Age: 79 Year
  Sex: Male

DRUGS (6)
  1. SERTRALINE HCL [Suspect]
     Indication: DEPRESSION
     Dosage: 25 MG; DAILY, 100 MG; DAILY
  2. SERTRALINE HCL [Suspect]
     Indication: POST-TRAUMATIC STRESS DISORDER
     Dosage: 25 MG; DAILY, 100 MG; DAILY
  3. ALLOPURINOL [Concomitant]
  4. FELODIPINE [Concomitant]
  5. LOVASTATIN [Concomitant]
  6. OMEPRAZOLE [Concomitant]

REACTIONS (8)
  - INCORRECT DOSE ADMINISTERED [None]
  - NUCLEAR MAGNETIC RESONANCE IMAGING ABNORMAL [None]
  - PERIODIC LIMB MOVEMENT DISORDER [None]
  - PHYSICAL ASSAULT [None]
  - RESTLESSNESS [None]
  - SLEEP DISORDER [None]
  - SLEEP INERTIA [None]
  - TREMOR [None]
